FAERS Safety Report 20464645 (Version 1)
Quarter: 2022Q1

REPORT INFORMATION
  Report Type: Spontaneous
  Country: US (occurrence: US)
  Receive Date: 20220211
  Receipt Date: 20220211
  Transmission Date: 20220423
  Serious: Yes (Other)
  Sender: FDA-Public Use
  Company Number: US-NOVARTISPH-NVSC2022US031508

PATIENT
  Age: 45 Year
  Sex: Male

DRUGS (2)
  1. RANITIDINE [Suspect]
     Active Substance: RANITIDINE
     Indication: Abdominal discomfort
     Dosage: 300 MG,,OTHER,DAILY - BUT NOT SURE WHEN SWITCHED OVER TO GENERIC FROM ZANTAC
     Route: 048
     Dates: start: 198801, end: 201907
  2. RANITIDINE [Suspect]
     Active Substance: RANITIDINE
     Indication: Abdominal discomfort
     Dosage: 300 MG,,OTHER,DAILY - BUT NOT SURE WHEN SWITCHED OVER TO GENERIC FROM ZANTAC
     Route: 048
     Dates: start: 198801, end: 201907

REACTIONS (3)
  - Hepatic cancer [Unknown]
  - Pancreatic carcinoma [Recovering/Resolving]
  - Mesothelioma [Unknown]

NARRATIVE: CASE EVENT DATE: 20090101
